FAERS Safety Report 5877553-X (Version None)
Quarter: 2008Q3

REPORT INFORMATION
  Report Type: 
  Country: None (occurrence: None)
  Receive Date: 20080911
  Receipt Date: 20080902
  Transmission Date: 20090109
  Serious: Yes (Hospitalization, Other)
  Sender: FDA-Public Use
  Company Number: PHEH2006US05803

PATIENT
  Sex: Female
  Weight: 75.736 kg

DRUGS (36)
  1. AREDIA [Suspect]
     Indication: BREAST CANCER METASTATIC
     Dosage: 90 MG IV Q3 WEEKS
     Dates: start: 19980101
  2. ZOMETA [Suspect]
     Indication: BREAST CANCER METASTATIC
     Dosage: UNK
     Dates: start: 19980101
  3. XELODA [Suspect]
  4. TAXOL [Concomitant]
     Indication: BREAST CANCER METASTATIC
     Dates: start: 20000701, end: 20001201
  5. TAXOL [Concomitant]
     Dates: start: 20050201
  6. HERCEPTIN [Concomitant]
     Indication: BREAST CANCER METASTATIC
     Dates: start: 20000701, end: 20001201
  7. HERCEPTIN [Concomitant]
     Dates: start: 20050201
  8. RADIATION TREATMENT [Concomitant]
     Indication: BREAST CANCER METASTATIC
     Dosage: 6840 CGY EXTERNAL BEAM
  9. TAMOXIFEN CITRATE [Concomitant]
     Dosage: 20 MG, QD
     Route: 048
     Dates: start: 19980101
  10. SYNTHROID [Concomitant]
     Indication: HYPOTHYROIDISM
     Dosage: 0.1 MG, QD
     Route: 048
  11. LIPITOR [Concomitant]
     Dosage: 10 MG, QD
     Route: 048
  12. PRILOSEC [Concomitant]
     Dosage: 20 MG, QD
     Route: 048
  13. VITAMIN E [Concomitant]
     Dosage: 400 IU, QD
     Route: 048
  14. CALCIUM [Concomitant]
     Dosage: 600 MG, QD
     Route: 048
  15. AROMASIN [Concomitant]
     Dosage: 25 MG, QD
     Route: 048
  16. COUMADIN [Concomitant]
     Dosage: 1 MG, QD
     Route: 048
  17. NORVASC [Concomitant]
  18. ACIPHEX [Concomitant]
  19. WARFARIN SODIUM [Concomitant]
  20. LISINOPRIL [Concomitant]
  21. MEVACOR [Concomitant]
     Indication: BLOOD CHOLESTEROL INCREASED
  22. ZESTRIL [Concomitant]
     Indication: HYPERTENSION
     Dosage: 5 MG, UNK
  23. TORADOL [Concomitant]
  24. DEMEROL [Concomitant]
  25. DARVOCET-N 100 [Concomitant]
  26. COMPAZINE [Concomitant]
  27. DALMANE [Concomitant]
  28. VISTARIL [Concomitant]
  29. PREMARIN [Concomitant]
  30. PROVERA [Concomitant]
  31. MIDRIN [Concomitant]
  32. NITROGLYCERIN [Concomitant]
  33. DIGOXIN [Concomitant]
  34. ZOFRAN [Concomitant]
  35. PLAVIX [Concomitant]
  36. COREG [Concomitant]

REACTIONS (48)
  - ANGINA UNSTABLE [None]
  - ANXIETY [None]
  - AORTIC VALVE INCOMPETENCE [None]
  - BILIARY COLIC [None]
  - BIOPSY BONE ABNORMAL [None]
  - BONE DEBRIDEMENT [None]
  - BONE DISORDER [None]
  - BONE SCAN ABNORMAL [None]
  - BONE SWELLING [None]
  - BRUXISM [None]
  - BUNDLE BRANCH BLOCK LEFT [None]
  - CARDIOMYOPATHY [None]
  - CATHETERISATION CARDIAC [None]
  - CHEST PAIN [None]
  - DIZZINESS [None]
  - DYSGEUSIA [None]
  - ELECTROCARDIOGRAM QT PROLONGED [None]
  - ENDODONTIC PROCEDURE [None]
  - ERYTHEMA [None]
  - GALLBLADDER DISORDER [None]
  - GINGIVAL BLEEDING [None]
  - GINGIVAL HYPERPLASIA [None]
  - GINGIVAL PAIN [None]
  - GINGIVAL SWELLING [None]
  - GINGIVITIS [None]
  - HYPOCALCAEMIA [None]
  - IMPAIRED HEALING [None]
  - IMPLANTABLE DEFIBRILLATOR INSERTION [None]
  - INJURY [None]
  - LOSS OF CONSCIOUSNESS [None]
  - MASS [None]
  - METASTASES TO LUNG [None]
  - MUSCLE SPASMS [None]
  - ORAL DISCOMFORT [None]
  - OSTEONECROSIS [None]
  - PAIN [None]
  - PAIN IN JAW [None]
  - PARAESTHESIA [None]
  - PLEURAL EFFUSION [None]
  - PRIMARY SEQUESTRUM [None]
  - PULMONARY MASS [None]
  - RECURRENT CANCER [None]
  - ROAD TRAFFIC ACCIDENT [None]
  - SYNCOPE [None]
  - TOOTH EXTRACTION [None]
  - TOOTH FRACTURE [None]
  - TOOTHACHE [None]
  - VASOSPASM [None]
